FAERS Safety Report 18712741 (Version 1)
Quarter: 2021Q1

REPORT INFORMATION
  Report Type: Spontaneous
  Country: US (occurrence: US)
  Receive Date: 20210107
  Receipt Date: 20210107
  Transmission Date: 20210419
  Serious: Yes (Other)
  Sender: FDA-Public Use
  Company Number: None

PATIENT
  Age: 77 Year
  Sex: Male
  Weight: 72.9 kg

DRUGS (7)
  1. PRADAXA [Concomitant]
     Active Substance: DABIGATRAN ETEXILATE MESYLATE
  2. CO?Q?TEN [Concomitant]
  3. PROSTATE SUPPLEMENTS [Concomitant]
  4. METOPROLOL. [Concomitant]
     Active Substance: METOPROLOL
  5. MAGNESIU [Concomitant]
  6. BAMLANIVIMAB. [Suspect]
     Active Substance: BAMLANIVIMAB
     Indication: COVID-19
     Dosage: ?          OTHER FREQUENCY:ONE TIME;?
     Route: 042
  7. MULTI VITAMINS [Concomitant]
     Active Substance: VITAMINS

REACTIONS (4)
  - Heart rate increased [None]
  - Chills [None]
  - Pyrexia [None]
  - Fatigue [None]

NARRATIVE: CASE EVENT DATE: 20210106
